FAERS Safety Report 17580114 (Version 1)
Quarter: 2020Q1

REPORT INFORMATION
  Report Type: Spontaneous
  Country: US (occurrence: US)
  Receive Date: 20200325
  Receipt Date: 20200325
  Transmission Date: 20200409
  Serious: No
  Sender: FDA-Public Use
  Company Number: US-PFIZER INC-2020124430

PATIENT
  Age: 63 Year
  Sex: Male
  Weight: 68.27 kg

DRUGS (6)
  1. PANTOPRAZOLE SODIUM. [Concomitant]
     Active Substance: PANTOPRAZOLE SODIUM
     Dosage: 20 MG, UNK
  2. TYLENOL [Concomitant]
     Active Substance: ACETAMINOPHEN
     Dosage: 325 MG, UNK
  3. ADVIL [IBUPROFEN] [Concomitant]
     Active Substance: IBUPROFEN
     Dosage: 200 MG, UNK
  4. ASPIRIN EC [Concomitant]
     Active Substance: ASPIRIN
     Dosage: 325 MG, UNK
  5. IBRANCE [Suspect]
     Active Substance: PALBOCICLIB
     Indication: BREAST CANCER MALE
     Dosage: 125 MG, DAILY (FOR 21 DAYS)
     Route: 048
     Dates: start: 20200122
  6. POSTURE-D [CALCIUM PHOSPHATE;COLECALCIFEROL;ERGOCALCIFEROL] [Concomitant]
     Dosage: 600 MG, UNK

REACTIONS (1)
  - Hot flush [Unknown]
